FAERS Safety Report 4775459-0 (Version None)
Quarter: 2005Q3

REPORT INFORMATION
  Report Type: 
  Country: None (occurrence: None)
  Receive Date: 20050921
  Receipt Date: 20050921
  Transmission Date: 20060218
  Serious: Yes (Life-Threatening, Hospitalization)
  Sender: FDA-Public Use
  Company Number: None

PATIENT
  Sex: Male
  Weight: 81.6475 kg

DRUGS (2)
  1. ZOLOFT [Suspect]
     Indication: ANXIETY
     Dosage: 1 PER DAY
     Dates: start: 20050909, end: 20050915
  2. XANAX [Suspect]
     Indication: ANXIETY
     Dosage: 1 PER DAY
     Dates: start: 20050909, end: 20050915

REACTIONS (10)
  - ABNORMAL BEHAVIOUR [None]
  - CRYING [None]
  - DYSKINESIA [None]
  - HYPERHIDROSIS [None]
  - INCOHERENT [None]
  - INSOMNIA [None]
  - MOANING [None]
  - RESTLESSNESS [None]
  - SUICIDE ATTEMPT [None]
  - TREMOR [None]
